FAERS Safety Report 15964967 (Version 1)
Quarter: 2019Q1

REPORT INFORMATION
  Report Type: Spontaneous
  Country: IT (occurrence: IT)
  Receive Date: 20190215
  Receipt Date: 20190215
  Transmission Date: 20190418
  Serious: Yes (Hospitalization)
  Sender: FDA-Public Use
  Company Number: IT-ACCORD-107426

PATIENT
  Age: 83 Year
  Sex: Male

DRUGS (8)
  1. DOXAZOSIN [Suspect]
     Active Substance: DOXAZOSIN\DOXAZOSIN MESYLATE
     Indication: PRODUCT USED FOR UNKNOWN INDICATION
     Route: 048
     Dates: start: 20170101, end: 20170714
  2. GLYCERYL TRINITRATE [Concomitant]
     Active Substance: NITROGLYCERIN
  3. LANSOX [Concomitant]
     Active Substance: LANSOPRAZOLE
  4. AMLODIPINE [Suspect]
     Active Substance: AMLODIPINE BESYLATE
     Indication: PRODUCT USED FOR UNKNOWN INDICATION
     Route: 048
     Dates: start: 20170101, end: 20170714
  5. TAMSULOSIN [Concomitant]
     Active Substance: TAMSULOSIN
  6. LASIX [Suspect]
     Active Substance: FUROSEMIDE
     Indication: PRODUCT USED FOR UNKNOWN INDICATION
     Route: 048
     Dates: start: 20170101, end: 20170714
  7. SIVASTIN [Concomitant]
     Active Substance: SIMVASTATIN
  8. CARDIRENE [Concomitant]
     Active Substance: ASPIRIN DL-LYSINE

REACTIONS (2)
  - Sinus bradycardia [Unknown]
  - Presyncope [Unknown]

NARRATIVE: CASE EVENT DATE: 20170714
